FAERS Safety Report 8399545-1 (Version None)
Quarter: 2012Q2

REPORT INFORMATION
  Report Type: 
  Country: None (occurrence: None)
  Receive Date: 20120531
  Receipt Date: 20120521
  Transmission Date: 20120825
  Serious: Yes (Hospitalization, Disabling, Other)
  Sender: FDA-Public Use
  Company Number: US-MERCK-1103USA00905

PATIENT
  Age: 56 Year
  Sex: Female
  Weight: 74 kg

DRUGS (11)
  1. FOSAMAX [Suspect]
     Indication: OSTEOPENIA
     Route: 048
     Dates: start: 20020101
  2. FOSAMAX [Suspect]
     Route: 048
     Dates: start: 20030701
  3. CITRACAL + D [Concomitant]
     Indication: OSTEOPENIA
     Route: 065
     Dates: start: 20040101
  4. CENTRUM (MINERALS (UNSPECIFIED) (+) VITAMINS (UNSPECIFIED)) [Concomitant]
     Route: 065
  5. FOSAMAX [Suspect]
     Route: 048
     Dates: start: 20080501, end: 20100301
  6. OS-CAL + D [Concomitant]
     Indication: OSTEOPENIA
     Route: 065
     Dates: start: 20090101
  7. ALENDRONATE SODIUM [Suspect]
     Indication: OSTEOPOROSIS
     Route: 048
     Dates: start: 20080101
  8. ATENOLOL [Concomitant]
     Route: 065
  9. PRAVACHOL [Concomitant]
     Route: 065
  10. ALENDRONATE SODIUM [Suspect]
     Indication: OSTEOPOROSIS PROPHYLAXIS
     Route: 048
     Dates: start: 20080101
  11. VITAMINS (UNSPECIFIED) [Concomitant]
     Route: 065

REACTIONS (36)
  - BACK PAIN [None]
  - DYSPEPSIA [None]
  - TOOTH INFECTION [None]
  - BONE CYST [None]
  - FEMUR FRACTURE [None]
  - FRACTURE [None]
  - RHONCHI [None]
  - RIB FRACTURE [None]
  - FATIGUE [None]
  - LOW TURNOVER OSTEOPATHY [None]
  - INTERVERTEBRAL DISC DISORDER [None]
  - SEBORRHOEIC KERATOSIS [None]
  - CORONARY ARTERY DISEASE [None]
  - DIVERTICULUM INTESTINAL [None]
  - ACTINIC KERATOSIS [None]
  - ATROPHODERMA OF PASINI AND PIERINI [None]
  - LIMB INJURY [None]
  - ACROCHORDON [None]
  - SKIN FISSURES [None]
  - OSTEOPOROSIS [None]
  - HAEMANGIOMA [None]
  - TINEA PEDIS [None]
  - SCIATICA [None]
  - ROTATOR CUFF SYNDROME [None]
  - OSTEOARTHRITIS [None]
  - EXOSTOSIS [None]
  - PSORIATIC ARTHROPATHY [None]
  - LATEX ALLERGY [None]
  - FOOT DEFORMITY [None]
  - LENTIGO [None]
  - LUMBAR SPINAL STENOSIS [None]
  - BURSITIS [None]
  - BLOOD CALCIUM INCREASED [None]
  - FOOT FRACTURE [None]
  - DRY MOUTH [None]
  - FACET JOINT SYNDROME [None]
